FAERS Safety Report 10177185 (Version 3)
Quarter: 2014Q4

REPORT INFORMATION
  Report Type: Spontaneous
  Country: GB (occurrence: GB)
  Receive Date: 20140516
  Receipt Date: 20141006
  Transmission Date: 20150528
  Serious: Yes (Death, Hospitalization, Other)
  Sender: FDA-Public Use
  Company Number: GB-ALEXION PHARMACEUTICALS INC.-A201305272

PATIENT

DRUGS (7)
  1. PIPERACILLIN [Concomitant]
     Active Substance: PIPERACILLIN
     Indication: SEPSIS
     Dosage: UNK
     Route: 042
     Dates: start: 20130626, end: 20130703
  2. TAZOBACTAM [Concomitant]
     Active Substance: TAZOBACTAM
     Indication: SEPSIS
     Dosage: UNK
     Route: 042
     Dates: start: 20130626, end: 20130703
  3. MIDAZOLAM [Concomitant]
     Active Substance: MIDAZOLAM\MIDAZOLAM HYDROCHLORIDE
     Indication: SEDATION
     Dosage: UNK
     Route: 042
     Dates: start: 20130624
  4. FENTANYL. [Concomitant]
     Active Substance: FENTANYL
     Indication: SEDATION
     Dosage: UNK
     Route: 042
     Dates: start: 20130624
  5. SOLIRIS [Suspect]
     Active Substance: ECULIZUMAB
     Indication: MICROANGIOPATHIC HAEMOLYTIC ANAEMIA
     Dosage: 300 MG, QW
     Route: 042
     Dates: start: 20130626, end: 20130703
  6. SOLIRIS [Suspect]
     Active Substance: ECULIZUMAB
     Indication: OFF LABEL USE
  7. ADRENALINE                         /00003901/ [Concomitant]
     Active Substance: EPINEPHRINE
     Indication: HYPOTENSION
     Dosage: UNK
     Route: 042
     Dates: start: 20130625

REACTIONS (10)
  - Drug ineffective [Not Recovered/Not Resolved]
  - Ill-defined disorder [Unknown]
  - Multi-organ failure [Fatal]
  - Thrombotic microangiopathy [Unknown]
  - Haematology test abnormal [Unknown]
  - Off label use [Unknown]
  - Crying [Unknown]
  - Pain [Unknown]
  - Haemolysis [Not Recovered/Not Resolved]
  - Blood lactate dehydrogenase increased [Unknown]

NARRATIVE: CASE EVENT DATE: 20130708
